FAERS Safety Report 18202086 (Version 2)
Quarter: 2020Q3

REPORT INFORMATION
  Report Type: Spontaneous
  Country: US (occurrence: US)
  Receive Date: 20200827
  Receipt Date: 20200901
  Transmission Date: 20201103
  Serious: Yes (Death)
  Sender: FDA-Public Use
  Company Number: US-PFIZER INC-2020325707

PATIENT
  Sex: Male

DRUGS (2)
  1. ERYTHROMYCIN. [Suspect]
     Active Substance: ERYTHROMYCIN
     Indication: PNEUMONIA LEGIONELLA
     Dosage: 500 MG, 4X/DAY
     Route: 064
  2. ERYTHROMYCIN. [Suspect]
     Active Substance: ERYTHROMYCIN
     Indication: PNEUMONIA LEGIONELLA
     Dosage: 1 G, 4X/DAY
     Route: 064

REACTIONS (2)
  - Maternal exposure during pregnancy [Fatal]
  - Neonatal respiratory distress syndrome [Fatal]
